FAERS Safety Report 9096498 (Version 3)
Quarter: 2013Q1

REPORT INFORMATION
  Report Type: Spontaneous
  Country: IL (occurrence: IL)
  Receive Date: 20130211
  Receipt Date: 20130301
  Transmission Date: 20140127
  Serious: Yes (Death, Other)
  Sender: FDA-Public Use
  Company Number: IL-EISAI INC-E7389-03521-SPO-IL

PATIENT
  Age: 51 Year
  Sex: Female
  Weight: 59 kg

DRUGS (1)
  1. HALAVEN [Suspect]
     Indication: BREAST CANCER METASTATIC
     Route: 041
     Dates: start: 20130103, end: 20130123

REACTIONS (3)
  - General physical health deterioration [Fatal]
  - Depressed level of consciousness [Unknown]
  - Renal failure [Unknown]
